FAERS Safety Report 8876321 (Version 3)
Quarter: 2012Q4

REPORT INFORMATION
  Report Type: 
  Country: US (occurrence: US)
  Receive Date: 20121023
  Receipt Date: 20121206
  Transmission Date: 20130627
  Serious: No
  Sender: FDA-Public Use
  Company Number: US-009507513-1210USA007964

PATIENT
  Sex: Female

DRUGS (1)
  1. IMPLANON [Suspect]
     Indication: CONTRACEPTION
     Dosage: 68 mg, 3 year implant
     Route: 059

REACTIONS (5)
  - Weight increased [Not Recovered/Not Resolved]
  - Medical device complication [Unknown]
  - Medical device complication [Unknown]
  - Medical device complication [Unknown]
  - Medical device complication [Unknown]
